FAERS Safety Report 16453639 (Version 6)
Quarter: 2020Q3

REPORT INFORMATION
  Report Type: Report from Study
  Country: US (occurrence: US)
  Receive Date: 20190619
  Receipt Date: 20200701
  Transmission Date: 20201102
  Serious: Yes (Other)
  Sender: FDA-Public Use
  Company Number: US-ACTELION-A-NJ2018-177241

PATIENT
  Sex: Female
  Weight: 52.61 kg

DRUGS (6)
  1. OPSUMIT [Suspect]
     Active Substance: MACITENTAN
     Dosage: 10 MG
     Route: 048
  2. OPSUMIT [Suspect]
     Active Substance: MACITENTAN
     Indication: PULMONARY ARTERIAL HYPERTENSION
     Dosage: 10 MG, QD
     Route: 048
     Dates: start: 20170510
  3. WARFARIN [Concomitant]
     Active Substance: WARFARIN
  4. ELIQUIS [Concomitant]
     Active Substance: APIXABAN
  5. UPTRAVI [Suspect]
     Active Substance: SELEXIPAG
     Indication: PULMONARY ARTERIAL HYPERTENSION
     Dosage: 1600 MCG, BID
     Route: 048
  6. ADEMPAS [Concomitant]
     Active Substance: RIOCIGUAT
     Dosage: 2 MG, TID
     Route: 065

REACTIONS (13)
  - Hypotension [Not Recovered/Not Resolved]
  - Vomiting [Recovered/Resolved]
  - Cerebral haemorrhage [Recovering/Resolving]
  - Cardiomegaly [Unknown]
  - Oxygen saturation decreased [Unknown]
  - Headache [Recovering/Resolving]
  - Nausea [Unknown]
  - Inappropriate schedule of product administration [Recovered/Resolved]
  - Disease progression [Unknown]
  - Pain in jaw [Unknown]
  - Bone density abnormal [Unknown]
  - Abdominal discomfort [Unknown]
  - Dyspnoea [Unknown]
